FAERS Safety Report 8862152 (Version 2)
Quarter: 2012Q4

REPORT INFORMATION
  Report Type: 
  Country: US (occurrence: US)
  Receive Date: 20121026
  Receipt Date: 20121029
  Transmission Date: 20130627
  Serious: Yes (Hospitalization, Other)
  Sender: FDA-Public Use
  Company Number: US-B.I. PHARMACEUTICALS,INC./RIDGEFIELD-2012-BP-20562BP

PATIENT
  Age: 78 Year
  Sex: Female

DRUGS (12)
  1. PRADAXA [Suspect]
     Indication: ATRIAL FIBRILLATION
     Dosage: 300 mg
     Route: 048
     Dates: end: 20120313
  2. ASA [Concomitant]
  3. MIDODRINE [Concomitant]
  4. MIDODRINE [Concomitant]
  5. SOTALOL [Concomitant]
  6. CERIFOLIN W NAC [Concomitant]
  7. K-DUR [Concomitant]
  8. FLRINEY [Concomitant]
  9. CRESTOR [Concomitant]
  10. CO-ENZYME Q10 [Concomitant]
  11. L CARNITINE [Concomitant]
  12. FENOFIBRATE [Concomitant]

REACTIONS (2)
  - Haemorrhagic cerebral infarction [Unknown]
  - Haemorrhagic stroke [Recovered/Resolved]
